FAERS Safety Report 4268079-8 (Version None)
Quarter: 2004Q1

REPORT INFORMATION
  Report Type: 
  Country: None (occurrence: None)
  Receive Date: 20040109
  Receipt Date: 20040109
  Transmission Date: 20041129
  Serious: Yes (Hospitalization)
  Sender: FDA-Public Use
  Company Number: None

PATIENT
  Age: 58 Year
  Sex: Female
  Weight: 52.1637 kg

DRUGS (4)
  1. NAVELBINE [Suspect]
     Indication: BREAST CANCER STAGE IV
     Dosage: 27.5 MG/M2, IV 1 HR
     Route: 042
     Dates: start: 20031229
  2. NEUPOGEN [Suspect]
     Indication: BREAST CANCER STAGE IV
     Dosage: 5 UG/KG/DAY/SQ
     Dates: start: 20031229
  3. ORAMORPH SR [Concomitant]
  4. ROXANOL [Concomitant]

REACTIONS (1)
  - BLOOD ELECTROLYTES ABNORMAL [None]
